FAERS Safety Report 12802341 (Version 1)
Quarter: 2016Q4

REPORT INFORMATION
  Report Type: Spontaneous
  Country: US (occurrence: US)
  Receive Date: 20161003
  Receipt Date: 20161003
  Transmission Date: 20170207
  Serious: No
  Sender: FDA-Public Use
  Company Number: US-JAZZ-2016-US-012227

PATIENT
  Sex: Female
  Weight: 74.83 kg

DRUGS (18)
  1. ASPIRIN. [Concomitant]
     Active Substance: ASPIRIN
  2. XYREM [Suspect]
     Active Substance: SODIUM OXYBATE
     Indication: FIBROMYALGIA
     Dosage: 2.5 G, BID
     Route: 048
     Dates: start: 200703, end: 200705
  3. XYREM [Suspect]
     Active Substance: SODIUM OXYBATE
     Dosage: DOSE ADJUSTMENTS
     Route: 048
     Dates: start: 200705, end: 2016
  4. XYREM [Suspect]
     Active Substance: SODIUM OXYBATE
     Dosage: 4.3 G, BID
     Route: 048
     Dates: start: 2016
  5. CYCLOBENZAPRINE [Concomitant]
     Active Substance: CYCLOBENZAPRINE
     Indication: FIBROMYALGIA
     Dosage: UNK, PRN
  6. CITALOPRAM [Concomitant]
     Active Substance: CITALOPRAM HYDROBROMIDE
     Indication: DEPRESSION
  7. HYDROCHLOROTHIAZIDE. [Concomitant]
     Active Substance: HYDROCHLOROTHIAZIDE
  8. CRESTOR [Concomitant]
     Active Substance: ROSUVASTATIN CALCIUM
     Indication: BLOOD CHOLESTEROL INCREASED
  9. PROVIGIL [Concomitant]
     Active Substance: MODAFINIL
  10. SYNTHROID [Concomitant]
     Active Substance: LEVOTHYROXINE SODIUM
  11. LYRICA [Concomitant]
     Active Substance: PREGABALIN
  12. PRILOSEC [Concomitant]
     Active Substance: OMEPRAZOLE MAGNESIUM
  13. KAPIDEX [Concomitant]
     Active Substance: DEXLANSOPRAZOLE
  14. FLEXERIL [Concomitant]
     Active Substance: CYCLOBENZAPRINE HYDROCHLORIDE
  15. PREMARIN [Concomitant]
     Active Substance: ESTROGENS, CONJUGATED
  16. CELEBREX [Concomitant]
     Active Substance: CELECOXIB
     Indication: FIBROMYALGIA
     Dosage: UNK, PRN
  17. CELEXA [Concomitant]
     Active Substance: CITALOPRAM HYDROBROMIDE
  18. LEVOTHYROXINE. [Concomitant]
     Active Substance: LEVOTHYROXINE
     Indication: HYPOTHYROIDISM

REACTIONS (1)
  - Hypertension [Recovering/Resolving]

NARRATIVE: CASE EVENT DATE: 2013
